FAERS Safety Report 4761620-8 (Version None)
Quarter: 2005Q3

REPORT INFORMATION
  Report Type: 
  Country: None (occurrence: None)
  Receive Date: 20050906
  Receipt Date: 20050623
  Transmission Date: 20060218
  Serious: Yes (Life-Threatening, Hospitalization)
  Sender: FDA-Public Use
  Company Number: DE-MERCK-0506DEU00195

PATIENT
  Age: 72 Year
  Sex: Male

DRUGS (4)
  1. COZAAR [Suspect]
     Indication: HYPERTENSION
     Route: 048
     Dates: start: 20040501, end: 20050530
  2. BISOPROLOL [Concomitant]
     Route: 065
  3. VERAPAMIL HYDROCHLORIDE [Concomitant]
     Route: 065
  4. HYDROCHLOROTHIAZIDE AND TRIAMTERENE [Concomitant]
     Route: 065

REACTIONS (7)
  - ALVEOLITIS [None]
  - ATRIAL FIBRILLATION [None]
  - BRONCHITIS CHRONIC [None]
  - DIABETES MELLITUS INSULIN-DEPENDENT [None]
  - HAEMOLYTIC ANAEMIA [None]
  - PULMONARY FIBROSIS [None]
  - RASH PRURITIC [None]
